FAERS Safety Report 13016950 (Version 1)
Quarter: 2016Q4

REPORT INFORMATION
  Report Type: Spontaneous
  Country: US (occurrence: US)
  Receive Date: 20161209
  Receipt Date: 20161209
  Transmission Date: 20170207
  Serious: Yes (Life-Threatening, Other)
  Sender: FDA-Public Use
  Company Number: None

PATIENT
  Age: 30 Year
  Sex: Male
  Weight: 76.5 kg

DRUGS (2)
  1. DICLOFENAC SOD [Suspect]
     Active Substance: DICLOFENAC SODIUM
     Indication: LIGAMENT SPRAIN
     Dosage: ?          QUANTITY:1 TABLET(S);?
     Route: 048
     Dates: start: 20161206, end: 20161208
  2. DICLOFENAC SOD [Suspect]
     Active Substance: DICLOFENAC SODIUM
     Indication: PAIN
     Dosage: ?          QUANTITY:1 TABLET(S);?
     Route: 048
     Dates: start: 20161206, end: 20161208

REACTIONS (3)
  - Urticaria [None]
  - Rash [None]
  - Pharyngeal oedema [None]

NARRATIVE: CASE EVENT DATE: 20161208
